FAERS Safety Report 8265054-3 (Version None)
Quarter: 2012Q2

REPORT INFORMATION
  Report Type: 
  Country: None (occurrence: None)
  Receive Date: 20120406
  Receipt Date: 20120322
  Transmission Date: 20120825
  Serious: Yes (Other)
  Sender: FDA-Public Use
  Company Number: FR-ROCHE-1034348

PATIENT
  Sex: Male

DRUGS (1)
  1. AVASTIN [Suspect]
     Indication: COLORECTAL CANCER METASTATIC
     Dates: end: 20111109

REACTIONS (3)
  - NERVOUS SYSTEM DISORDER [None]
  - LOSS OF CONSCIOUSNESS [None]
  - EPILEPSY [None]
